FAERS Safety Report 6342165-0 (Version None)
Quarter: 2009Q3

REPORT INFORMATION
  Report Type: 
  Country: None (occurrence: None)
  Receive Date: 20090904
  Receipt Date: 20090904
  Transmission Date: 20100115
  Serious: Yes (Other)
  Sender: FDA-Public Use
  Company Number: None

PATIENT
  Age: 62 Year
  Sex: Female
  Weight: 65.7716 kg

DRUGS (1)
  1. TENORMIN [Suspect]
     Indication: ATRIAL TACHYCARDIA
     Dosage: 50MG TWICE DAILY PO
     Route: 048
     Dates: start: 20090319, end: 20090706

REACTIONS (6)
  - CARDIAC DISORDER [None]
  - EXTRASYSTOLES [None]
  - FATIGUE [None]
  - MALAISE [None]
  - PALPITATIONS [None]
  - TREMOR [None]
